FAERS Safety Report 16119731 (Version 1)
Quarter: 2019Q1

REPORT INFORMATION
  Report Type: Report from Study
  Country: US (occurrence: US)
  Receive Date: 20190326
  Receipt Date: 20190326
  Transmission Date: 20190418
  Serious: Yes (Hospitalization, Other)
  Sender: FDA-Public Use
  Company Number: US-EXELIXIS-XL18418016763

PATIENT
  Age: 75 Year
  Sex: Male
  Weight: 78.3 kg

DRUGS (21)
  1. KENALOG [Concomitant]
     Active Substance: TRIAMCINOLONE ACETONIDE
  2. MICONAZOLE. [Concomitant]
     Active Substance: MICONAZOLE
  3. CALCIUM [Concomitant]
     Active Substance: CALCIUM
  4. FIBER [Concomitant]
     Active Substance: PSYLLIUM HUSK
  5. LOPID [Concomitant]
     Active Substance: GEMFIBROZIL
  6. MOTRIN [Concomitant]
     Active Substance: IBUPROFEN
  7. ATEZOLIZUMAB. [Suspect]
     Active Substance: ATEZOLIZUMAB
     Indication: HORMONE-REFRACTORY PROSTATE CANCER
     Dosage: 1200 MG, Q3WEEKS
     Route: 042
     Dates: start: 20180618
  8. PROTOPIC [Concomitant]
     Active Substance: TACROLIMUS
  9. LISINOPRIL. [Concomitant]
     Active Substance: LISINOPRIL
  10. XL184 [Suspect]
     Active Substance: CABOZANTINIB
     Dosage: 40 MG, QD
     Route: 048
     Dates: start: 20181210
  11. CALCIPOTRIENE. [Concomitant]
     Active Substance: CALCIPOTRIENE
  12. CLOBETASOL [Concomitant]
     Active Substance: CLOBETASOL
  13. FLONASE [Concomitant]
     Active Substance: FLUTICASONE PROPIONATE
  14. PROTONIX [Concomitant]
     Active Substance: PANTOPRAZOLE SODIUM
  15. XYZAL [Concomitant]
     Active Substance: LEVOCETIRIZINE DIHYDROCHLORIDE
  16. MUPIROCIN. [Concomitant]
     Active Substance: MUPIROCIN
  17. BIOTIN [Concomitant]
     Active Substance: BIOTIN
  18. VITAMIN D [Concomitant]
     Active Substance: CHOLECALCIFEROL
  19. XL184 [Suspect]
     Active Substance: CABOZANTINIB
     Indication: HORMONE-REFRACTORY PROSTATE CANCER
     Dosage: 40 MG, QD
     Route: 048
     Dates: start: 20180618, end: 20181010
  20. ATARAX [Concomitant]
     Active Substance: HYDROXYZINE HYDROCHLORIDE
  21. ALLEGRA [Concomitant]
     Active Substance: FEXOFENADINE HYDROCHLORIDE

REACTIONS (3)
  - Cellulitis [Recovered/Resolved]
  - Perirectal abscess [Unknown]
  - Adrenal insufficiency [Recovered/Resolved]

NARRATIVE: CASE EVENT DATE: 20181021
